FAERS Safety Report 8120035-5 (Version None)
Quarter: 2012Q1

REPORT INFORMATION
  Report Type: 
  Country: None (occurrence: None)
  Receive Date: 20120207
  Receipt Date: 20120131
  Transmission Date: 20120608
  Serious: Yes (Death)
  Sender: FDA-Public Use
  Company Number: HU-BRISTOL-MYERS SQUIBB COMPANY-16306474

PATIENT
  Age: 55 Year
  Sex: Male

DRUGS (11)
  1. CISPLATIN [Suspect]
     Indication: GASTRIC CANCER
     Dosage: LAST DOSE:30NOV11 80MG/M2 ON 30NOV11
     Route: 041
     Dates: start: 20111130, end: 20111130
  2. FLUOROURACIL [Suspect]
     Indication: GASTRIC CANCER
     Dosage: INJECTION FOR INFUSION INTER ON 4DEC11 LAST DOSE:05DEC11 800MG/M2/DAY
     Route: 041
     Dates: start: 20111130, end: 20111204
  3. ONDANSETRON HCL [Concomitant]
     Indication: PREMEDICATION
     Dates: start: 20111130, end: 20111204
  4. QUAMATEL [Concomitant]
     Indication: PROPHYLAXIS
     Dates: start: 20111203, end: 20111203
  5. CERUCAL [Concomitant]
     Indication: NAUSEA
     Dates: start: 20111203, end: 20111204
  6. TRAMADOL HCL [Concomitant]
     Indication: GASTROINTESTINAL PAIN
     Dates: start: 20111118
  7. MAGNESIUM CHLORIDE [Concomitant]
     Indication: PREMEDICATION
     Dates: start: 20111130, end: 20111204
  8. SEDUXEN [Concomitant]
     Indication: ANXIETY
     Dates: start: 20111204, end: 20111204
  9. FRONTIN [Concomitant]
     Indication: ANXIETY
     Dates: start: 20111204, end: 20111204
  10. POTASSIUM CHLORIDE [Concomitant]
     Indication: PREMEDICATION
     Dates: start: 20111130, end: 20111204
  11. FUROSEMIDE [Concomitant]
     Indication: PREMEDICATION
     Dates: start: 20111130, end: 20111130

REACTIONS (1)
  - CYTOTOXIC CARDIOMYOPATHY [None]
